FAERS Safety Report 8309097-X (Version None)
Quarter: 2012Q2

REPORT INFORMATION
  Report Type: 
  Country: None (occurrence: None)
  Receive Date: 20120424
  Receipt Date: 20120411
  Transmission Date: 20120825
  Serious: Yes (Hospitalization)
  Sender: FDA-Public Use
  Company Number: IN-MYLANLABS-2012S1007606

PATIENT
  Age: 21 Year
  Sex: Male

DRUGS (2)
  1. PHENYTOIN [Suspect]
     Indication: GRAND MAL CONVULSION
     Dosage: 300 MG/DAY
  2. MANDRAX [Interacting]
     Route: 065

REACTIONS (4)
  - DRUG INTERACTION [None]
  - CEREBELLAR SYNDROME [None]
  - TOXICITY TO VARIOUS AGENTS [None]
  - VESTIBULAR DISORDER [None]
